FAERS Safety Report 17242661 (Version 1)
Quarter: 2020Q1

REPORT INFORMATION
  Report Type: Spontaneous
  Country: US (occurrence: US)
  Receive Date: 20200107
  Receipt Date: 20200107
  Transmission Date: 20200409
  Serious: No
  Sender: FDA-Public Use
  Company Number: US-SA-2020SA003289

PATIENT
  Age: 87 Year
  Sex: Female

DRUGS (2)
  1. PRALUENT [Suspect]
     Active Substance: ALIROCUMAB
     Indication: BLOOD CHOLESTEROL INCREASED
     Dosage: 75 MG, QOW
  2. LYRICA [Concomitant]
     Active Substance: PREGABALIN

REACTIONS (3)
  - Middle insomnia [Unknown]
  - Dysuria [Unknown]
  - Vulvovaginal burning sensation [Unknown]
